FAERS Safety Report 7581855-9 (Version None)
Quarter: 2011Q2

REPORT INFORMATION
  Report Type: 
  Country: None (occurrence: None)
  Receive Date: 20110629
  Receipt Date: 20110617
  Transmission Date: 20111010
  Serious: Yes (Other)
  Sender: FDA-Public Use
  Company Number: US-AMGEN-USASP2011031133

PATIENT
  Age: 61 Year
  Sex: Female

DRUGS (2)
  1. ENBREL [Suspect]
     Indication: FIBROMYALGIA
  2. ENBREL [Suspect]
     Indication: RHEUMATOID ARTHRITIS
     Dosage: 50 MG, QWK
     Dates: start: 20100722, end: 20110528

REACTIONS (11)
  - MALAISE [None]
  - ABDOMINAL DISTENSION [None]
  - VESSEL PUNCTURE SITE HAEMATOMA [None]
  - FEELING HOT [None]
  - PYREXIA [None]
  - VESSEL PUNCTURE SITE PAIN [None]
  - HEADACHE [None]
  - FIBROMYALGIA [None]
  - CHILLS [None]
  - ABDOMINAL PAIN LOWER [None]
  - VESSEL PUNCTURE SITE SWELLING [None]
